FAERS Safety Report 18638962 (Version 2)
Quarter: 2021Q2

REPORT INFORMATION
  Report Type: Report from Study
  Country: US (occurrence: US)
  Receive Date: 20201219
  Receipt Date: 20210410
  Transmission Date: 20210717
  Serious: No
  Sender: FDA-Public Use
  Company Number: NVSC2020US334642

PATIENT
  Age: 25 Year

DRUGS (1)
  1. COSENTYX [Suspect]
     Active Substance: SECUKINUMAB
     Indication: PSORIATIC ARTHROPATHY
     Dosage: 300 MG, QW FOR 5 WEEKS AND THEN Q4W
     Route: 058
     Dates: start: 20201130

REACTIONS (2)
  - Inflammation [Recovered/Resolved]
  - Myalgia [Recovered/Resolved]

NARRATIVE: CASE EVENT DATE: 20201207
